FAERS Safety Report 9361834 (Version 1)
Quarter: 2013Q2

REPORT INFORMATION
  Report Type: Spontaneous
  Country: US (occurrence: US)
  Receive Date: 20130621
  Receipt Date: 20130621
  Transmission Date: 20140414
  Serious: Yes (Death)
  Sender: FDA-Public Use
  Company Number: US-GLAXOSMITHKLINE-A0790901A

PATIENT
  Sex: Male

DRUGS (4)
  1. AVANDIA [Suspect]
     Indication: TYPE 2 DIABETES MELLITUS
     Route: 048
  2. LOTREL [Concomitant]
  3. DIGOXIN [Concomitant]
  4. TOPROL XL [Concomitant]

REACTIONS (2)
  - Myocardial infarction [Fatal]
  - Cardiovascular disorder [Unknown]
